FAERS Safety Report 8396215-0 (Version None)
Quarter: 2012Q2

REPORT INFORMATION
  Report Type: 
  Country: None (occurrence: None)
  Receive Date: 20120530
  Receipt Date: 20120525
  Transmission Date: 20120825
  Serious: Yes (Other)
  Sender: FDA-Public Use
  Company Number: JP-GLAXOSMITHKLINE-B0804468A

PATIENT
  Age: 77 Year
  Sex: Female

DRUGS (3)
  1. ZOVIRAX [Suspect]
     Indication: ENCEPHALITIS HERPES
     Dosage: 1500MG PER DAY
     Route: 042
     Dates: start: 20120406, end: 20120409
  2. SILECE [Concomitant]
     Route: 065
  3. HALOPERIDOL [Concomitant]
     Route: 065

REACTIONS (4)
  - ANURIA [None]
  - BLOOD CREATININE INCREASED [None]
  - TUBULOINTERSTITIAL NEPHRITIS [None]
  - OEDEMA [None]
